FAERS Safety Report 9455340 (Version 1)
Quarter: 2013Q3

REPORT INFORMATION
  Report Type: Spontaneous
  Country: US (occurrence: None)
  Receive Date: 20130813
  Receipt Date: 20130813
  Transmission Date: 20140515
  Serious: Yes (Hospitalization)
  Sender: FDA-Public Use
  Company Number: None

PATIENT
  Age: 84 Year
  Sex: Male

DRUGS (1)
  1. CALCIUM GLUCONATE [Suspect]
     Dosage: 2GRAMS 100 MLS  NS -- INTRAVENOUS
     Route: 042
     Dates: start: 20130803, end: 20130803

REACTIONS (2)
  - Blood culture positive [None]
  - Suspected transmission of an infectious agent via product [None]
